FAERS Safety Report 19314467 (Version 2)
Quarter: 2021Q4

REPORT INFORMATION
  Report Type: Report from Study
  Country: ES (occurrence: ES)
  Receive Date: 20210527
  Receipt Date: 20211123
  Transmission Date: 20220303
  Serious: Yes (Hospitalization, Other)
  Sender: FDA-Public Use
  Company Number: ES-JNJFOC-20210533369

PATIENT

DRUGS (4)
  1. BORTEZOMIB [Suspect]
     Active Substance: BORTEZOMIB
     Indication: Plasma cell myeloma
     Dosage: UNK
     Route: 065
     Dates: start: 20190503, end: 20190904
  2. BORTEZOMIB [Suspect]
     Active Substance: BORTEZOMIB
     Dosage: UNK
     Route: 065
     Dates: start: 20190503, end: 20190904
  3. MELPHALAN [Suspect]
     Active Substance: MELPHALAN
     Indication: Plasma cell myeloma
     Dosage: UNK
     Route: 065
     Dates: start: 20190503, end: 20190904
  4. PREDNISONE [Suspect]
     Active Substance: PREDNISONE
     Indication: Plasma cell myeloma
     Dosage: UNK
     Route: 065
     Dates: start: 20190503, end: 20190904

REACTIONS (7)
  - Neuropathy peripheral [Unknown]
  - Asthenia [Unknown]
  - Decreased appetite [Unknown]
  - Amylase increased [Unknown]
  - Discomfort [Unknown]
  - Pain [Unknown]
  - Drug tolerance decreased [Unknown]

NARRATIVE: CASE EVENT DATE: 20190802
